FAERS Safety Report 22165990 (Version 1)
Quarter: 2023Q1

REPORT INFORMATION
  Report Type: Spontaneous
  Country: US (occurrence: None)
  Receive Date: 20230331
  Receipt Date: 20230331
  Transmission Date: 20230417
  Serious: Yes (Hospitalization)
  Sender: FDA-Public Use
  Company Number: None

PATIENT
  Age: 83 Year
  Sex: Male
  Weight: 79.29 kg

DRUGS (24)
  1. CYCLOPHOSPHAMIDE [Suspect]
     Active Substance: CYCLOPHOSPHAMIDE
     Indication: Plasma cell myeloma
     Dosage: OTHER FREQUENCY : DAY 1. 8, 15;?
     Route: 048
  2. BENZONATATE [Concomitant]
     Active Substance: BENZONATATE
  3. CARVEDILOL [Concomitant]
     Active Substance: CARVEDILOL
  4. CETIRIZINE HCL [Concomitant]
     Active Substance: CETIRIZINE HYDROCHLORIDE
  5. CRANBERRY FRUIT [Concomitant]
  6. DEXAMETHASONE [Concomitant]
     Active Substance: DEXAMETHASONE
  7. ELIQUIS [Concomitant]
     Active Substance: APIXABAN
  8. FINASTERIDE [Concomitant]
     Active Substance: FINASTERIDE
  9. GABAPENTIN [Concomitant]
     Active Substance: GABAPENTIN
  10. LACTOBACILLUS ACIDOPHILUS [Concomitant]
     Active Substance: LACTOBACILLUS ACIDOPHILUS
  11. LASIX [Concomitant]
     Active Substance: FUROSEMIDE
  12. LEVOTHYROXINE SODIUM [Concomitant]
     Active Substance: LEVOTHYROXINE SODIUM
  13. MIDODRINE HYDROCHLORIDE [Concomitant]
     Active Substance: MIDODRINE HYDROCHLORIDE
  14. LIDOCAINE [Concomitant]
     Active Substance: LIDOCAINE
  15. MUCINEX [Concomitant]
     Active Substance: GUAIFENESIN
  16. VITAMINS [Concomitant]
     Active Substance: VITAMINS
  17. MYRBETRIQ [Concomitant]
     Active Substance: MIRABEGRON
  18. OMEPRAZOLE [Concomitant]
     Active Substance: OMEPRAZOLE
  19. OXYCODONE [Concomitant]
     Active Substance: OXYCODONE
  20. VALACYCLOVIR HYDROCHLORIDE [Concomitant]
     Active Substance: VALACYCLOVIR HYDROCHLORIDE
  21. PreviDent 5000 Booster Plus [Concomitant]
  22. VITAMIN B COMPLEX [Concomitant]
     Active Substance: CYANOCOBALAMIN\DEXPANTHENOL\NIACINAMIDE\PYRIDOXINE HYDROCHLORIDE\RIBOFLAVIN 5^-PHOSPHATE SODIUM\THIA
  23. VITAMIN B12 [Concomitant]
     Active Substance: CYANOCOBALAMIN
  24. VITAMIN D3 [Concomitant]
     Active Substance: CHOLECALCIFEROL

REACTIONS (2)
  - Pneumonia [None]
  - Therapy interrupted [None]
